FAERS Safety Report 4829464-6 (Version None)
Quarter: 2005Q4

REPORT INFORMATION
  Report Type: 
  Country: None (occurrence: None)
  Receive Date: 20051028
  Receipt Date: 20040927
  Transmission Date: 20060501
  Serious: Yes (Hospitalization)
  Sender: FDA-Public Use
  Company Number: US013904

PATIENT
  Age: 45 Year
  Sex: Female

DRUGS (1)
  1. PROVIGIL [Suspect]
     Indication: LETHARGY
     Dosage: 200 MG BID ORAL
     Route: 048
     Dates: start: 20040913, end: 20040915

REACTIONS (1)
  - ACUTE PSYCHOSIS [None]
